FAERS Safety Report 18928482 (Version 9)
Quarter: 2022Q4

REPORT INFORMATION
  Report Type: Report from Study
  Country: US (occurrence: US)
  Receive Date: 20210223
  Receipt Date: 20221103
  Transmission Date: 20230113
  Serious: Yes (Other)
  Sender: FDA-Public Use
  Company Number: US-TAKEDA-US202030439

PATIENT
  Age: 58 Year
  Sex: Female

DRUGS (4)
  1. HUMAN IMMUNOGLOBULIN G\HYALURONIDASE RECOMBINANT HUMAN [Suspect]
     Active Substance: HUMAN IMMUNOGLOBULIN G\HYALURONIDASE RECOMBINANT HUMAN
     Indication: Primary immunodeficiency syndrome
     Dosage: 47.5 GRAM
     Route: 065
  2. HUMAN IMMUNOGLOBULIN G\HYALURONIDASE RECOMBINANT HUMAN [Suspect]
     Active Substance: HUMAN IMMUNOGLOBULIN G\HYALURONIDASE RECOMBINANT HUMAN
     Dosage: 47.5 GRAM, 2/WEEK
     Route: 065
  3. HUMAN IMMUNOGLOBULIN G\HYALURONIDASE RECOMBINANT HUMAN [Suspect]
     Active Substance: HUMAN IMMUNOGLOBULIN G\HYALURONIDASE RECOMBINANT HUMAN
     Dosage: 4.5 GRAM, 2/MONTH
     Route: 065
  4. HUMAN IMMUNOGLOBULIN G\HYALURONIDASE RECOMBINANT HUMAN [Suspect]
     Active Substance: HUMAN IMMUNOGLOBULIN G\HYALURONIDASE RECOMBINANT HUMAN
     Dosage: 47.5 GRAM, Q2WEEKS
     Route: 065

REACTIONS (19)
  - Pulmonary arterial hypertension [Unknown]
  - Herpes zoster [Not Recovered/Not Resolved]
  - Intervertebral disc protrusion [Unknown]
  - Sneezing [Unknown]
  - Needle issue [Unknown]
  - Multiple allergies [Unknown]
  - Carpal tunnel syndrome [Unknown]
  - Hypoaesthesia [Unknown]
  - Hypervolaemia [Unknown]
  - Sinus disorder [Unknown]
  - Foot fracture [Recovering/Resolving]
  - COVID-19 [Recovered/Resolved]
  - Peripheral swelling [Unknown]
  - Urticaria chronic [Unknown]
  - Blood iron decreased [Unknown]
  - Haemorrhoidal haemorrhage [Unknown]
  - Fatigue [Unknown]
  - Feeling cold [Unknown]
  - Cyanosis [Unknown]

NARRATIVE: CASE EVENT DATE: 20201221
